FAERS Safety Report 6508205-0 (Version None)
Quarter: 2009Q4

REPORT INFORMATION
  Report Type: 
  Country: None (occurrence: None)
  Receive Date: 20091221
  Receipt Date: 20081204
  Transmission Date: 20100525
  Serious: No
  Sender: FDA-Public Use
  Company Number: US-ASTRAZENECA-2008UW27011

PATIENT
  Age: 78 Year
  Sex: Female
  Weight: 81.6 kg

DRUGS (5)
  1. CRESTOR [Suspect]
     Indication: HYPERCHOLESTEROLAEMIA
     Dosage: 10 MG
     Route: 048
     Dates: start: 20081130
  2. AZOR [Concomitant]
     Dosage: 10/40 MG
  3. LEVOTHYROXINE SODIUM [Concomitant]
     Dosage: 0.075 MG
  4. ASPIRIN [Concomitant]
     Dosage: 81 MG
  5. LORAZEPAM [Concomitant]

REACTIONS (1)
  - DIARRHOEA [None]
